FAERS Safety Report 17450372 (Version 1)
Quarter: 2020Q1

REPORT INFORMATION
  Report Type: Report from Study
  Country: IN (occurrence: IN)
  Receive Date: 20200224
  Receipt Date: 20200224
  Transmission Date: 20200409
  Serious: Yes (Other)
  Sender: FDA-Public Use
  Company Number: IN-ROCHE-2553200

PATIENT

DRUGS (2)
  1. RITUXIMAB. [Suspect]
     Active Substance: RITUXIMAB
     Indication: RHEUMATOID ARTHRITIS
     Dosage: DAYS 1 AND 15
     Route: 042
  2. LEFLUNOMIDE. [Concomitant]
     Active Substance: LEFLUNOMIDE

REACTIONS (18)
  - Cellulitis [Recovered/Resolved]
  - Atrial fibrillation [Recovered/Resolved]
  - Spondylolisthesis [Recovered/Resolved]
  - Interstitial lung disease [Not Recovered/Not Resolved]
  - Febrile neutropenia [Recovered/Resolved]
  - Cardio-respiratory arrest [Recovered/Resolved]
  - Intestinal obstruction [Recovered/Resolved]
  - Neutropenia [Recovered/Resolved]
  - Forearm fracture [Recovered/Resolved]
  - Humerus fracture [Recovered/Resolved]
  - Gastroenteritis viral [Recovered/Resolved]
  - Infusion related reaction [Recovered/Resolved]
  - H1N1 influenza [Recovered/Resolved]
  - Pyelonephritis acute [Recovered/Resolved]
  - Spinal compression fracture [Recovered/Resolved]
  - Pyrexia [Recovered/Resolved]
  - Urinary tract infection [Recovered/Resolved]
  - Femoral neck fracture [Recovered/Resolved]
